FAERS Safety Report 4337563-0 (Version None)
Quarter: 2004Q2

REPORT INFORMATION
  Report Type: 
  Country: None (occurrence: None)
  Receive Date: 20040408
  Receipt Date: 20040329
  Transmission Date: 20050107
  Serious: Yes (Life-Threatening)
  Sender: FDA-Public Use
  Company Number: 2004207476IT

PATIENT
  Age: 88 Year
  Sex: Female

DRUGS (1)
  1. FRAGMIN [Suspect]
     Indication: THROMBOSIS PROPHYLAXIS
     Dosage: SUBCUTANEOUS
     Route: 058
     Dates: start: 20040216, end: 20040321

REACTIONS (4)
  - DRUG INEFFECTIVE [None]
  - GANGRENE [None]
  - THROMBOCYTOPENIA [None]
  - VENOUS THROMBOSIS LIMB [None]
